FAERS Safety Report 9995278 (Version 1)
Quarter: 2014Q1

REPORT INFORMATION
  Report Type: Spontaneous
  Country: JP (occurrence: JP)
  Receive Date: 20140311
  Receipt Date: 20140311
  Transmission Date: 20141002
  Serious: Yes (Other)
  Sender: FDA-Public Use
  Company Number: JP-ASTELLAS-2014JP001819

PATIENT
  Age: 13 Year
  Sex: Female

DRUGS (8)
  1. PROGRAF [Suspect]
     Indication: PROPHYLAXIS AGAINST GRAFT VERSUS HOST DISEASE
     Dosage: UNK
     Route: 041
  2. METHOTREXATE [Concomitant]
     Indication: PROPHYLAXIS AGAINST GRAFT VERSUS HOST DISEASE
     Dosage: 15 MG/M2, UNKNOWN/D
     Route: 065
  3. METHOTREXATE [Concomitant]
     Dosage: 10 MG/M2, UNKNOWN/D
     Route: 065
  4. MELPHALAN [Concomitant]
     Indication: PREMEDICATION
     Route: 065
  5. ANTIBIOTICS [Concomitant]
     Indication: PROPHYLAXIS
     Route: 065
  6. ANTIFUNGALS [Concomitant]
     Indication: PROPHYLAXIS
     Route: 065
  7. GRANULOCYTE COLONY-STIMULATING FACTOR NOS [Concomitant]
     Route: 065
  8. CANDESARTAN                        /01349502/ [Concomitant]
     Indication: PROPHYLAXIS
     Route: 065

REACTIONS (2)
  - Drug ineffective [Unknown]
  - Chronic graft versus host disease [Unknown]
